FAERS Safety Report 6442504-6 (Version None)
Quarter: 2009Q4

REPORT INFORMATION
  Report Type: 
  Country: None (occurrence: None)
  Receive Date: 20091112
  Receipt Date: 20091028
  Transmission Date: 20100525
  Serious: Yes (Other)
  Sender: FDA-Public Use
  Company Number: 2009289479

PATIENT
  Age: 66 Year
  Sex: Male

DRUGS (5)
  1. DALTEPARIN SODIUM [Suspect]
     Indication: LUNG NEOPLASM MALIGNANT
     Dosage: 5000 IU, UNK, SUBCUTANEOUS
     Route: 058
     Dates: start: 20090930, end: 20091026
  2. CARBOPLATIN [Suspect]
     Indication: LUNG NEOPLASM MALIGNANT
     Dosage: 540 UNK, UNK, INTRAVENOUS
     Route: 042
     Dates: start: 20090930
  3. ONDANSETRON [Concomitant]
  4. DEXAMETHASONE TAB [Concomitant]
  5. METOCLOPRAMIDE [Concomitant]

REACTIONS (7)
  - BODY TEMPERATURE DECREASED [None]
  - HAEMATOCRIT DECREASED [None]
  - HAEMOGLOBIN DECREASED [None]
  - HEART RATE INCREASED [None]
  - MONOCYTE COUNT DECREASED [None]
  - RED BLOOD CELL COUNT DECREASED [None]
  - WHITE BLOOD CELL COUNT INCREASED [None]
